FAERS Safety Report 8508137-2 (Version None)
Quarter: 2012Q2

REPORT INFORMATION
  Report Type: 
  Country: None (occurrence: None)
  Receive Date: 20120405
  Receipt Date: 20090817
  Transmission Date: 20120825
  Serious: Yes (Other)
  Sender: FDA-Public Use
  Company Number: PHEH2009US09525

PATIENT
  Age: 68 Year
  Sex: Female
  Weight: 40.4 kg

DRUGS (1)
  1. RECLAST [Suspect]
     Indication: OSTEOPOROSIS
     Dosage: 5 MG ONCE YEARLY, IV INFUSION
     Route: 042
     Dates: start: 20090706

REACTIONS (1)
  - RENAL FAILURE [None]
